FAERS Safety Report 6987851-4 (Version None)
Quarter: 2010Q3

REPORT INFORMATION
  Report Type: 
  Country: None (occurrence: None)
  Receive Date: 20100830
  Receipt Date: 20100310
  Transmission Date: 20110219
  Serious: Yes (Hospitalization)
  Sender: FDA-Public Use
  Company Number: CIP10000551

PATIENT
  Sex: Female

DRUGS (2)
  1. ASACOL HD [Suspect]
     Indication: COLITIS ULCERATIVE
     Dosage: 1600 MG, 3/DAY, ORAL ; 800 MG, 3/DAY, ORAL
     Route: 048
  2. ASACOL HD [Suspect]
     Indication: INFLAMMATORY BOWEL DISEASE
     Dosage: 1600 MG, 3/DAY, ORAL ; 800 MG, 3/DAY, ORAL
     Route: 048

REACTIONS (2)
  - CHEST PAIN [None]
  - PERICARDITIS [None]
